FAERS Safety Report 11897926 (Version 1)
Quarter: 2016Q1

REPORT INFORMATION
  Report Type: Spontaneous
  Country: GB (occurrence: GB)
  Receive Date: 20160108
  Receipt Date: 20160108
  Transmission Date: 20160526
  Serious: Yes (Hospitalization)
  Sender: FDA-Public Use
  Company Number: GB-TEVA-623249ACC

PATIENT
  Age: 87 Year
  Sex: Male

DRUGS (6)
  1. SIMVASTATIN. [Concomitant]
     Active Substance: SIMVASTATIN
  2. BISOPROLOL [Concomitant]
     Active Substance: BISOPROLOL
     Dosage: STOPPED AS THE PATIENT WAS DIAGNOSED WITH POSTURAL?HYPOTENSION DUE TO MEDICATION.
  3. RAMIPRIL. [Suspect]
     Active Substance: RAMIPRIL
     Dosage: 5 MILLIGRAM DAILY; AT NIGHT
     Route: 048
     Dates: start: 201106
  4. RAMIPRIL. [Suspect]
     Active Substance: RAMIPRIL
     Indication: HYPERTENSION
     Dosage: 10 MILLIGRAM DAILY; DOSE REDUCED TO 5MG
     Route: 048
     Dates: end: 201106
  5. BICALUTAMIDE. [Concomitant]
     Active Substance: BICALUTAMIDE
  6. WARFARIN [Concomitant]
     Active Substance: WARFARIN
     Dosage: OMITTED UNTIL INR STABLE

REACTIONS (3)
  - Syncope [Recovering/Resolving]
  - International normalised ratio increased [Recovered/Resolved]
  - Loss of consciousness [Recovering/Resolving]

NARRATIVE: CASE EVENT DATE: 201105
